FAERS Safety Report 16099079 (Version 1)
Quarter: 2019Q1

REPORT INFORMATION
  Report Type: Spontaneous
  Country: DE (occurrence: DE)
  Receive Date: 20190321
  Receipt Date: 20190321
  Transmission Date: 20190418
  Serious: Yes (Other)
  Sender: FDA-Public Use
  Company Number: DE-TEVA-2019-DE-1026291

PATIENT
  Age: 3 Decade

DRUGS (9)
  1. CARBOPLATIN. [Suspect]
     Active Substance: CARBOPLATIN
     Dosage: CONSOLIDATION PHASE
     Route: 065
     Dates: start: 201501, end: 201512
  2. CARBOPLATIN. [Suspect]
     Active Substance: CARBOPLATIN
     Dosage: INDUCTION PHASE
     Route: 065
     Dates: start: 20141103, end: 20141104
  3. CARBOPLATIN. [Suspect]
     Active Substance: CARBOPLATIN
     Dosage: INDUCTION PHASE
     Route: 065
     Dates: start: 2014, end: 201412
  4. CARBOPLATIN. [Suspect]
     Active Substance: CARBOPLATIN
     Indication: OPTIC GLIOMA
     Dosage: INDUCTION PHASE
     Route: 065
     Dates: start: 20140625, end: 20140626
  5. CARBOPLATIN. [Suspect]
     Active Substance: CARBOPLATIN
     Dosage: INDUCTION PHASE
     Route: 065
     Dates: start: 20141008, end: 20141009
  6. VINCRISTINE [Suspect]
     Active Substance: VINCRISTINE
     Indication: OPTIC GLIOMA
     Dosage: INDUCTION PHASE
     Route: 065
     Dates: start: 20140625, end: 201412
  7. VINCRISTINE [Suspect]
     Active Substance: VINCRISTINE
     Dosage: CONSOLIDATION PHASE
     Route: 065
     Dates: start: 201501, end: 201512
  8. CARBOPLATIN. [Suspect]
     Active Substance: CARBOPLATIN
     Dosage: INDUCTION PHASE
     Route: 065
     Dates: start: 20140911, end: 20140912
  9. CARBOPLATIN. [Suspect]
     Active Substance: CARBOPLATIN
     Dosage: INDUCTION PHASE
     Route: 065
     Dates: start: 20140717, end: 20140718

REACTIONS (5)
  - Bone marrow toxicity [Unknown]
  - Ototoxicity [Unknown]
  - Nausea [Unknown]
  - Neurotoxicity [Unknown]
  - Vomiting [Unknown]
